FAERS Safety Report 10264422 (Version 2)
Quarter: 2014Q2

REPORT INFORMATION
  Report Type: Spontaneous
  Country: JP (occurrence: JP)
  Receive Date: 20140627
  Receipt Date: 20140627
  Transmission Date: 20141212
  Serious: Yes (Hospitalization)
  Sender: FDA-Public Use
  Company Number: JP-ELI_LILLY_AND_COMPANY-JP201406005661

PATIENT
  Age: 55 Year
  Sex: Female

DRUGS (13)
  1. ZYPREXA [Suspect]
     Indication: SCHIZOPHRENIA
     Dosage: 5 MG, QD
     Route: 048
  2. ZYPREXA [Suspect]
     Dosage: 15 MG, QD
     Route: 048
  3. ZYPREXA [Suspect]
     Dosage: 20 MG, QD
     Route: 048
  4. ZYPREXA [Suspect]
     Dosage: 15 MG, QD
     Route: 048
  5. ZYPREXA [Suspect]
     Dosage: 7.5 MG, QD
     Route: 048
  6. RISPERIDONE [Suspect]
     Indication: SCHIZOPHRENIA
     Dosage: 1 MG, QD
     Route: 065
  7. RISPERIDONE [Suspect]
     Dosage: 2 MG, QD
     Route: 065
  8. RISPERIDONE [Suspect]
     Dosage: 3 MG, QD
     Route: 065
  9. RISPERIDONE [Suspect]
     Dosage: 4 MG, QD
     Route: 065
  10. RISPERIDONE [Suspect]
     Dosage: 6 MG, QD
     Route: 065
  11. RISPERIDONE [Suspect]
     Dosage: 4 MG, QD
     Route: 065
  12. RISPERIDONE [Suspect]
     Dosage: 2.5 MG, QD
     Route: 065
  13. RISPERIDONE [Suspect]
     Dosage: UNK

REACTIONS (2)
  - Epileptic psychosis [Recovered/Resolved]
  - Hyperprolactinaemia [Recovered/Resolved]
